FAERS Safety Report 5996199-6 (Version None)
Quarter: 2008Q4

REPORT INFORMATION
  Report Type: 
  Country: None (occurrence: None)
  Receive Date: 20081212
  Receipt Date: 20081013
  Transmission Date: 20090506
  Serious: No
  Sender: FDA-Public Use
  Company Number: US-ABBOTT-08P-163-0481291-00

PATIENT
  Sex: Male
  Weight: 83.99 kg

DRUGS (8)
  1. HUMIRA [Suspect]
     Indication: SACROILIITIS
     Route: 058
     Dates: start: 20071001, end: 20080701
  2. HUMIRA [Suspect]
  3. MESALAMINE [Concomitant]
     Indication: COLITIS ULCERATIVE
  4. M.V.I. [Concomitant]
     Indication: ROUTINE HEALTH MAINTENANCE
     Route: 048
  5. PREDNISONE TAB [Concomitant]
     Indication: ARTHRITIS
     Route: 048
  6. PREDNISONE TAB [Concomitant]
  7. HYDROCODONE BITARTRATE [Concomitant]
     Indication: PAIN
     Route: 048
  8. CELECOXIB [Concomitant]
     Indication: PAIN
     Route: 048

REACTIONS (4)
  - ARTHRALGIA [None]
  - BACK PAIN [None]
  - DRUG DOSE OMISSION [None]
  - PAIN [None]
